FAERS Safety Report 14998718 (Version 1)
Quarter: 2018Q2

REPORT INFORMATION
  Report Type: Spontaneous
  Country: US (occurrence: US)
  Receive Date: 20180612
  Receipt Date: 20180612
  Transmission Date: 20180711
  Serious: Yes (Other)
  Sender: FDA-Public Use
  Company Number: US-ROCHE-2132682

PATIENT
  Age: 63 Year
  Sex: Female
  Weight: 127.12 kg

DRUGS (1)
  1. ERIVEDGE [Suspect]
     Active Substance: VISMODEGIB
     Indication: BASAL CELL CARCINOMA
     Route: 048
     Dates: start: 201711

REACTIONS (12)
  - Colon neoplasm [Unknown]
  - Psychomotor hyperactivity [Not Recovered/Not Resolved]
  - Alopecia [Unknown]
  - Barrett^s oesophagus [Unknown]
  - Staphylococcal infection [Recovered/Resolved]
  - Muscle spasms [Not Recovered/Not Resolved]
  - Dysgeusia [Unknown]
  - Arthritis [Unknown]
  - Fatigue [Not Recovered/Not Resolved]
  - Ageusia [Unknown]
  - Diarrhoea [Not Recovered/Not Resolved]
  - Fungal infection [Recovered/Resolved]

NARRATIVE: CASE EVENT DATE: 201711
